FAERS Safety Report 19097172 (Version 3)
Quarter: 2021Q4

REPORT INFORMATION
  Report Type: Report from Study
  Country: FR (occurrence: FR)
  Receive Date: 20210406
  Receipt Date: 20211027
  Transmission Date: 20220303
  Serious: Yes (Hospitalization, Other)
  Sender: FDA-Public Use
  Company Number: NVSC2020FR295451

PATIENT
  Age: 65 Year
  Sex: Female
  Weight: 53 kg

DRUGS (6)
  1. TACROLIMUS [Suspect]
     Active Substance: TACROLIMUS
     Indication: Renal transplant
     Dosage: 6 MG
     Route: 048
     Dates: start: 20200923
  2. TACROLIMUS [Suspect]
     Active Substance: TACROLIMUS
     Dosage: 9 MG
     Route: 048
     Dates: start: 20200923
  3. TACROLIMUS [Suspect]
     Active Substance: TACROLIMUS
     Dosage: 7 MG
     Route: 048
     Dates: start: 20200923
  4. TACROLIMUS [Suspect]
     Active Substance: TACROLIMUS
     Dosage: 4 MG
     Route: 048
     Dates: start: 20200923
  5. TACROLIMUS [Suspect]
     Active Substance: TACROLIMUS
     Dosage: 9 MG
     Route: 048
     Dates: start: 20210301, end: 20210316
  6. TACROLIMUS [Suspect]
     Active Substance: TACROLIMUS
     Dosage: 10 MG
     Route: 048

REACTIONS (11)
  - Coronary artery stenosis [Recovered/Resolved]
  - Acute coronary syndrome [Recovered/Resolved]
  - Sepsis [Recovered/Resolved]
  - Pyelonephritis [Recovered/Resolved]
  - Pyelonephritis [Recovered/Resolved]
  - Scar [Recovered/Resolved]
  - Diabetic metabolic decompensation [Recovered/Resolved]
  - Pyelonephritis [Recovered/Resolved]
  - Hyponatraemia [Recovered/Resolved]
  - Hyponatraemia [Recovered/Resolved]
  - Leukocytosis [Recovered/Resolved]

NARRATIVE: CASE EVENT DATE: 20200924
